FAERS Safety Report 7892620-7 (Version None)
Quarter: 2011Q4

REPORT INFORMATION
  Report Type: 
  Country: None (occurrence: None)
  Receive Date: 20111028
  Receipt Date: 20111025
  Transmission Date: 20120403
  Serious: Yes (Hospitalization)
  Sender: FDA-Public Use
  Company Number: 2011029358

PATIENT
  Age: 76 Year
  Sex: Female
  Weight: 61.2356 kg

DRUGS (36)
  1. ASPIRIN [Concomitant]
  2. VITAMIN D [Concomitant]
  3. CALCIUM CARBONATE [Concomitant]
  4. HIZENTRA [Suspect]
  5. ACETAMINOPHEN [Concomitant]
  6. MELATONIN (MELATONIN) [Concomitant]
  7. NEXIUM [Concomitant]
  8. DUONEB [Concomitant]
  9. HYCODAN (HYDROCODONE SODIUM) [Concomitant]
  10. ZANTAC [Concomitant]
  11. FISH OIL (FISH OIL) [Concomitant]
  12. HIZENTRA [Suspect]
     Indication: IMMUNODEFICIENCY COMMON VARIABLE
     Dosage: 6 G 1/WEEK, INFUSED 30 ML VIA MULTIPLE SITES SUBCUTANEOUS (MULTIPLE SITES WITH PUMP
     Route: 058
     Dates: start: 20110628, end: 20110708
  13. HIZENTRA [Suspect]
     Indication: IMMUNODEFICIENCY COMMON VARIABLE
     Dosage: 6 G 1/WEEK, INFUSED 30 ML VIA MULTIPLE SITES SUBCUTANEOUS (MULTIPLE SITES WITH PUMP
     Route: 058
     Dates: start: 20110708, end: 20110819
  14. HIZENTRA [Suspect]
     Indication: IMMUNODEFICIENCY COMMON VARIABLE
     Dosage: 6 G 1/WEEK, INFUSED 30 ML VIA MULTIPLE SITES SUBCUTANEOUS (MULTIPLE SITES WITH PUMP
     Route: 058
     Dates: start: 20110819, end: 20110906
  15. HIZENTRA [Suspect]
  16. HIZENTRA [Suspect]
  17. PREDNISONE TAB [Concomitant]
  18. MAGNESIUM (MAGNESIUM) [Concomitant]
  19. SINGULAIR [Concomitant]
  20. COMBIVENT [Concomitant]
  21. LEVOXYL [Concomitant]
  22. SELENIUM (SELENIUM) [Concomitant]
  23. BUDESONIDE [Concomitant]
  24. BLACK COHOS (CIMICIFUGA RACEMOSA ROOT) [Concomitant]
  25. ADVAIR HFA [Concomitant]
  26. VITAMIN B COMPLEX (VITAMIN B) [Concomitant]
  27. GLUCOSAMINE (GLUCOSAMINE) [Concomitant]
  28. ZYRTEC [Concomitant]
  29. HIZENTRA [Suspect]
  30. NASONEX [Concomitant]
  31. SERTRALINE HYDROCHLORIDE [Concomitant]
  32. KEPPRA [Concomitant]
  33. MULTIVITAMIN (DAILY MULTIVITAIN) [Concomitant]
  34. HIZENTRA [Suspect]
  35. MUCINEX [Concomitant]
  36. PERFORMIST (FORMOTEROL) [Concomitant]

REACTIONS (9)
  - INFUSION SITE HAEMORRHAGE [None]
  - FATIGUE [None]
  - INFUSION SITE HAEMATOMA [None]
  - NAUSEA [None]
  - ASTHENIA [None]
  - GASTROOESOPHAGEAL REFLUX DISEASE [None]
  - COUGH [None]
  - PYREXIA [None]
  - INFECTION [None]
